FAERS Safety Report 12120448 (Version 3)
Quarter: 2016Q2

REPORT INFORMATION
  Report Type: Spontaneous
  Country: US (occurrence: US)
  Receive Date: 20160226
  Receipt Date: 20160414
  Transmission Date: 20160815
  Serious: No
  Sender: FDA-Public Use
  Company Number: US-009507513-1602USA012255

PATIENT
  Weight: 100.23 kg

DRUGS (1)
  1. NEXPLANON [Suspect]
     Active Substance: ETONOGESTREL
     Dosage: 68 MG, EVERY 3 YEARS
     Route: 059
     Dates: start: 20130221, end: 20160308

REACTIONS (6)
  - Complication of device removal [Recovered/Resolved]
  - Implant site oedema [Unknown]
  - Weight increased [Unknown]
  - Incorrect drug administration duration [Unknown]
  - Device breakage [Not Recovered/Not Resolved]
  - Metrorrhagia [Unknown]

NARRATIVE: CASE EVENT DATE: 201602
